FAERS Safety Report 25481703 (Version 1)
Quarter: 2025Q2

REPORT INFORMATION
  Report Type: Spontaneous
  Country: GB (occurrence: GB)
  Receive Date: 20250626
  Receipt Date: 20250626
  Transmission Date: 20250716
  Serious: Yes (Death, Other)
  Sender: AUROBINDO
  Company Number: GB-MHRA-MED-202506111221057820-BWZYQ

PATIENT
  Age: 84 Year
  Sex: Male

DRUGS (1)
  1. NITROFURANTOIN [Suspect]
     Active Substance: NITROFURANTOIN
     Indication: Adverse drug reaction
     Route: 065

REACTIONS (1)
  - Interstitial lung disease [Fatal]
